FAERS Safety Report 23442356 (Version 1)
Quarter: 2024Q1

REPORT INFORMATION
  Report Type: Spontaneous
  Country: None (occurrence: JP)
  Receive Date: 20240125
  Receipt Date: 20240125
  Transmission Date: 20240409
  Serious: Yes (Hospitalization, Other)
  Sender: FDA-Public Use
  Company Number: JP-Stason Pharmaceuticals, Inc.-2151988

PATIENT
  Age: 45 Year
  Sex: Female

DRUGS (1)
  1. METHOTREXATE [Suspect]
     Active Substance: METHOTREXATE
     Indication: Rheumatoid arthritis
     Route: 065

REACTIONS (1)
  - Muscle necrosis [Recovered/Resolved]
